FAERS Safety Report 19823971 (Version 1)
Quarter: 2021Q3

REPORT INFORMATION
  Report Type: Spontaneous
  Country: US (occurrence: US)
  Receive Date: 20210913
  Receipt Date: 20210913
  Transmission Date: 20211014
  Serious: No
  Sender: FDA-Public Use
  Company Number: US-KARYOPHARM-2021KPT001025

PATIENT

DRUGS (7)
  1. LOSARTAN. [Concomitant]
     Active Substance: LOSARTAN
  2. VELCADE [Concomitant]
     Active Substance: BORTEZOMIB
  3. DEXAMETHASONE. [Concomitant]
     Active Substance: DEXAMETHASONE
  4. XPOVIO [Suspect]
     Active Substance: SELINEXOR
     Indication: PLASMA CELL MYELOMA
     Dosage: 80 MG, WEEKLY
     Route: 048
     Dates: start: 20210713, end: 20210809
  5. ZOFRAN [Concomitant]
     Active Substance: ONDANSETRON HYDROCHLORIDE
  6. VARUBI [ROLAPITANT] [Concomitant]
  7. LEVOTHYROXINE. [Concomitant]
     Active Substance: LEVOTHYROXINE

REACTIONS (4)
  - Platelet count decreased [Unknown]
  - Vomiting [Unknown]
  - Haemoglobin decreased [Unknown]
  - Nausea [Not Recovered/Not Resolved]

NARRATIVE: CASE EVENT DATE: 20210802
